FAERS Safety Report 20096412 (Version 1)
Quarter: 2021Q4

REPORT INFORMATION
  Report Type: Spontaneous
  Country: RO (occurrence: RO)
  Receive Date: 20211122
  Receipt Date: 20211122
  Transmission Date: 20220304
  Serious: Yes (Other)
  Sender: FDA-Public Use
  Company Number: RO-BAYER-2021A250838

PATIENT
  Age: 65 Year
  Sex: Female

DRUGS (5)
  1. NEXAVAR [Suspect]
     Active Substance: SORAFENIB
     Indication: Hepatocellular carcinoma
     Dosage: UNK
  2. MEDROL [Concomitant]
     Active Substance: METHYLPREDNISOLONE
     Dosage: ? TABLET/DAY, IN THE MORNING
     Route: 048
  3. OMEPRAZOLE [Concomitant]
     Active Substance: OMEPRAZOLE
     Dosage: 20 MG
     Route: 048
  4. EBASTINE [Concomitant]
     Active Substance: EBASTINE
     Dosage: 1X2 TABLETS/DAY
     Route: 048
  5. CLOBETASOL [Concomitant]
     Active Substance: CLOBETASOL
     Dosage: UNK

REACTIONS (7)
  - Cutaneous vasculitis [None]
  - Hepatic mass [None]
  - Metastases to lung [None]
  - Lymphangiosis carcinomatosa [None]
  - Metastases to peritoneum [None]
  - Ascites [None]
  - Hepatomegaly [None]
